FAERS Safety Report 5299842-2 (Version None)
Quarter: 2007Q2

REPORT INFORMATION
  Report Type: 
  Country: None (occurrence: None)
  Receive Date: 20070417
  Receipt Date: 20070406
  Transmission Date: 20071010
  Serious: Yes (Other)
  Sender: FDA-Public Use
  Company Number: FR-PFIZER INC-2007028496

PATIENT
  Age: 75 Year
  Sex: Male

DRUGS (10)
  1. LYRICA [Suspect]
     Indication: NEURALGIA
  2. PARACETAMOL [Concomitant]
  3. ATENOLOL [Concomitant]
  4. NAFTIDROFURYL OXALATE [Concomitant]
  5. ASPIRIN [Concomitant]
  6. WARFARIN SODIUM [Concomitant]
  7. FUROSEMIDE [Concomitant]
  8. RAMIPRIL [Concomitant]
  9. ATORVASTATIN CALCIUM [Concomitant]
  10. PANTOPRAZOLE [Concomitant]

REACTIONS (3)
  - GAIT DISTURBANCE [None]
  - PAIN IN EXTREMITY [None]
  - PERIPHERAL COLDNESS [None]
